FAERS Safety Report 11458028 (Version 1)
Quarter: 2015Q3

REPORT INFORMATION
  Report Type: Spontaneous
  Country: US (occurrence: None)
  Receive Date: 20150903
  Receipt Date: 20150903
  Transmission Date: 20151125
  Serious: No
  Sender: FDA-Public Use
  Company Number: None

PATIENT
  Age: 64 Year
  Sex: Female
  Weight: 116.12 kg

DRUGS (8)
  1. ASPIRIN. [Concomitant]
     Active Substance: ASPIRIN
  2. NEURONTIN [Concomitant]
     Active Substance: GABAPENTIN
  3. ALLOPURINOL 300 MG 2084 V [Suspect]
     Active Substance: ALLOPURINOL
     Indication: GOUT
     Route: 048
  4. LEVOTHYROXIN [Concomitant]
     Active Substance: LEVOTHYROXINE
  5. MULTI-VITAMINS [Concomitant]
  6. FISH OIL [Concomitant]
     Active Substance: FISH OIL
  7. CINNAMON. [Concomitant]
     Active Substance: CINNAMON
  8. CALCIUM [Concomitant]
     Active Substance: CALCIUM

REACTIONS (1)
  - Palpitations [None]

NARRATIVE: CASE EVENT DATE: 20150831
